FAERS Safety Report 5153450-2 (Version None)
Quarter: 2006Q4

REPORT INFORMATION
  Report Type: 
  Country: None (occurrence: None)
  Receive Date: 20061117
  Receipt Date: 20060901
  Transmission Date: 20070319
  Serious: Yes (Hospitalization)
  Sender: FDA-Public Use
  Company Number: JP-ABBOTT-06P-087-0343051-00

PATIENT
  Sex: Female
  Weight: 49 kg

DRUGS (10)
  1. KALETRA [Suspect]
     Indication: HIV INFECTION
     Route: 048
     Dates: start: 20030306
  2. LAMIVUDINE [Suspect]
     Indication: HIV INFECTION
     Route: 048
     Dates: start: 20020315
  3. ZIDOVUDINE [Suspect]
     Indication: HIV INFECTION
     Route: 048
     Dates: start: 20030306
  4. BEZAFIBRATE [Concomitant]
     Indication: HIV INFECTION
     Route: 048
     Dates: start: 20030626
  5. LITHIUM CARBONATE [Concomitant]
     Indication: BIPOLAR DISORDER
     Route: 048
     Dates: start: 20050401
  6. QUAZEPAM [Concomitant]
     Indication: INSOMNIA
     Route: 048
     Dates: start: 20050401, end: 20050512
  7. ZOPICLONE [Concomitant]
     Indication: INSOMNIA
     Route: 048
     Dates: start: 20050401
  8. TIAPRIDE HYDROCHLORIDE [Concomitant]
     Indication: INSOMNIA
     Route: 048
     Dates: start: 20051228
  9. CEFTRIAXONE SODIUM [Concomitant]
     Indication: PNEUMONIA
     Route: 042
     Dates: start: 20051115, end: 20051129
  10. CLARITHROMYCIN [Concomitant]
     Indication: PNEUMONIA
     Route: 048
     Dates: start: 20051115, end: 20051129

REACTIONS (1)
  - SPINAL COMPRESSION FRACTURE [None]
